FAERS Safety Report 24902048 (Version 1)
Quarter: 2025Q1

REPORT INFORMATION
  Report Type: Spontaneous
  Country: US (occurrence: US)
  Receive Date: 20250129
  Receipt Date: 20250129
  Transmission Date: 20250409
  Serious: No
  Sender: SANOFI AVENTIS
  Company Number: US-SA-2025SA027041

PATIENT
  Age: 34 Year
  Sex: Female
  Weight: 59.09 kg

DRUGS (11)
  1. DUPIXENT [Suspect]
     Active Substance: DUPILUMAB
     Indication: Eosinophilic oesophagitis
     Dosage: 300 MG, QW
     Route: 058
  2. VITAMIN D3 [Concomitant]
     Active Substance: CHOLECALCIFEROL
  3. TADALAFIL [Concomitant]
     Active Substance: TADALAFIL
  4. WELLBUTRIN SR [Concomitant]
     Active Substance: BUPROPION HYDROCHLORIDE
  5. DEXTROAMPHETAMINE SULFATE [Concomitant]
     Active Substance: DEXTROAMPHETAMINE SULFATE
  6. ESTRADIOL VALERATE [Concomitant]
     Active Substance: ESTRADIOL VALERATE
  7. NAPROXEN [Concomitant]
     Active Substance: NAPROXEN
  8. ALBUTEROL SULFATE [Concomitant]
     Active Substance: ALBUTEROL SULFATE
  9. LEVOCETIRIZINE DIHYDROCHLORIDE [Concomitant]
     Active Substance: LEVOCETIRIZINE DIHYDROCHLORIDE
  10. TYLENOL [Concomitant]
     Active Substance: ACETAMINOPHEN
  11. PANTOPRAZOLE SODIUM [Concomitant]
     Active Substance: PANTOPRAZOLE SODIUM

REACTIONS (1)
  - Eosinophilic oesophagitis [Recovered/Resolved]

NARRATIVE: CASE EVENT DATE: 20240701
